FAERS Safety Report 8597910-0 (Version None)
Quarter: 2012Q3

REPORT INFORMATION
  Report Type: 
  Country: None (occurrence: None)
  Receive Date: 20120816
  Receipt Date: 20120810
  Transmission Date: 20120928
  Serious: Yes (Death)
  Sender: FDA-Public Use
  Company Number: PT-ASTELLAS-2012EU005805

PATIENT
  Age: 9 Month
  Sex: Male

DRUGS (4)
  1. PREDNISOLONE [Suspect]
     Indication: ACRODERMATITIS ENTEROPATHICA
     Dosage: 1 MG/KG, UNKNOWN/D
     Route: 065
  2. AMLODIPINE [Concomitant]
     Indication: HYPERTENSION
     Dosage: 0.25 MG/KG, UNKNOWN/D
     Route: 065
  3. CAPTOPRIL [Concomitant]
     Indication: HYPERTENSION
     Dosage: 1 MG/KG, UNKNOWN/D
     Route: 065
  4. TACROLIMUS [Suspect]
     Indication: ACRODERMATITIS ENTEROPATHICA
     Dosage: 0.06 MG/KG, UNKNOWN/D
     Route: 065

REACTIONS (5)
  - OFF LABEL USE [None]
  - ESCHERICHIA INFECTION [None]
  - MULTI-ORGAN FAILURE [None]
  - DEVICE RELATED INFECTION [None]
  - SEPTIC SHOCK [None]
